FAERS Safety Report 15888477 (Version 1)
Quarter: 2019Q1

REPORT INFORMATION
  Report Type: Spontaneous
  Country: FR (occurrence: FR)
  Receive Date: 20190130
  Receipt Date: 20190130
  Transmission Date: 20190417
  Serious: Yes (Hospitalization)
  Sender: FDA-Public Use
  Company Number: FR-TEVA-2019-FR-1004397

PATIENT
  Age: 68 Year
  Sex: Female
  Weight: 76 kg

DRUGS (2)
  1. PREGABALINE [Suspect]
     Active Substance: PREGABALIN
     Route: 048
     Dates: end: 20181026
  2. LANSOPRAZOLE. [Suspect]
     Active Substance: LANSOPRAZOLE
     Dosage: 15 MILLIGRAM DAILY;
     Route: 048
     Dates: end: 20181026

REACTIONS (1)
  - Hypercapnic coma [Recovered/Resolved]

NARRATIVE: CASE EVENT DATE: 20181021
